FAERS Safety Report 24574412 (Version 1)
Quarter: 2024Q4

REPORT INFORMATION
  Report Type: Spontaneous
  Country: ES (occurrence: ES)
  Receive Date: 20241104
  Receipt Date: 20241104
  Transmission Date: 20250114
  Serious: Yes (Death, Hospitalization)
  Sender: ACCORD
  Company Number: None

PATIENT
  Age: 9 Year
  Sex: Female
  Weight: 31 kg

DRUGS (2)
  1. METHOTREXATE [Suspect]
     Active Substance: METHOTREXATE
     Indication: B-cell type acute leukaemia
     Dosage: 5400 MG IN 24-HOUR INTRAVENOUS INFUSION
     Dates: start: 20231114, end: 20231115
  2. MERCAPTOPURINE [Suspect]
     Active Substance: MERCAPTOPURINE
     Indication: B-cell type acute leukaemia
     Dates: start: 20231114, end: 20231123

REACTIONS (3)
  - Enteritis [Fatal]
  - Bone marrow failure [Fatal]
  - Stomatitis [Fatal]

NARRATIVE: CASE EVENT DATE: 20231120
